FAERS Safety Report 9258287 (Version 1)
Quarter: 2013Q2

REPORT INFORMATION
  Report Type: Spontaneous
  Country: US (occurrence: None)
  Receive Date: 20130424
  Receipt Date: 20130424
  Transmission Date: 20140414
  Serious: Yes (Other)
  Sender: FDA-Public Use
  Company Number: None

PATIENT
  Age: 53 Year
  Sex: Female
  Weight: 58.97 kg

DRUGS (1)
  1. VESICARE [Suspect]
     Indication: INCONTINENCE
     Dosage: 10 MG   1/2 PILL DAILY
     Route: 048
     Dates: start: 20130318, end: 20130325

REACTIONS (4)
  - Hypoaesthesia oral [None]
  - Hypoaesthesia oral [None]
  - Pruritus [None]
  - Wrong technique in drug usage process [None]
